FAERS Safety Report 22213980 (Version 2)
Quarter: 2023Q2

REPORT INFORMATION
  Report Type: Spontaneous
  Country: US (occurrence: US)
  Receive Date: 20230414
  Receipt Date: 20230620
  Transmission Date: 20230721
  Serious: No
  Sender: FDA-Public Use
  Company Number: US-APIL-2309650US

PATIENT
  Sex: Female
  Weight: 103.41 kg

DRUGS (2)
  1. LILETTA [Suspect]
     Active Substance: LEVONORGESTREL
     Indication: Product used for unknown indication
     Dosage: TIME INTERVAL: AS NECESSARY
     Route: 015
     Dates: start: 20220628, end: 20221118
  2. ASACOL [Concomitant]
     Active Substance: MESALAMINE
     Indication: Product used for unknown indication

REACTIONS (1)
  - Device expulsion [Recovered/Resolved]
